FAERS Safety Report 20813433 (Version 1)
Quarter: 2022Q2

REPORT INFORMATION
  Report Type: Spontaneous
  Country: US (occurrence: None)
  Receive Date: 20220510
  Receipt Date: 20220510
  Transmission Date: 20220721
  Serious: No
  Sender: FDA-Public Use
  Company Number: None

PATIENT
  Age: 83 Year
  Sex: Female

DRUGS (1)
  1. HUMIRA [Suspect]
     Active Substance: ADALIMUMAB
     Indication: Rheumatoid arthritis
     Dosage: OTHER FREQUENCY : EVERY 14 DAYS;?
     Route: 030
     Dates: start: 20220330

REACTIONS (4)
  - Wrong schedule [None]
  - Product dose omission issue [None]
  - Therapeutic product effect decreased [None]
  - Product dose confusion [None]

NARRATIVE: CASE EVENT DATE: 20220330
